FAERS Safety Report 8881166 (Version 2)
Quarter: 2012Q4

REPORT INFORMATION
  Report Type: 
  Country: JP (occurrence: JP)
  Receive Date: 20121031
  Receipt Date: 20121203
  Transmission Date: 20130627
  Serious: Yes (Other)
  Sender: FDA-Public Use
  Company Number: PHHY2012JP097230

PATIENT
  Sex: Female

DRUGS (1)
  1. GILENYA [Suspect]
     Indication: MULTIPLE SCLEROSIS RELAPSE
     Dosage: 0.5 mg, QD
     Route: 048
     Dates: start: 20121016, end: 20121018

REACTIONS (8)
  - Coagulopathy [Unknown]
  - Fibrin D dimer increased [Unknown]
  - Fibrin degradation products increased [Unknown]
  - Platelet count decreased [Unknown]
  - Hepatic function abnormal [Recovered/Resolved]
  - Alanine aminotransferase increased [Unknown]
  - Aspartate aminotransferase increased [Unknown]
  - Pyrexia [Unknown]
